FAERS Safety Report 8193220-4 (Version None)
Quarter: 2012Q1

REPORT INFORMATION
  Report Type: 
  Country: None (occurrence: None)
  Receive Date: 20120223
  Receipt Date: 20110328
  Transmission Date: 20120608
  Serious: Yes (Disabling)
  Sender: FDA-Public Use
  Company Number: WAES 1103USA03599

PATIENT
  Age: 31 Year
  Sex: Male
  Weight: 71.6683 kg

DRUGS (2)
  1. PROPECIA [Suspect]
     Indication: ANDROGENETIC ALOPECIA
     Dosage: 1 MG/PO
     Route: 048
     Dates: start: 19990101, end: 20090701
  2. FINASTERIDE [Suspect]
     Indication: ANDROGENETIC ALOPECIA
     Dosage: 1 MG/PO
     Route: 048
     Dates: start: 19990101, end: 20090701

REACTIONS (8)
  - SEMEN VOLUME DECREASED [None]
  - LIBIDO DECREASED [None]
  - ERECTILE DYSFUNCTION [None]
  - ASTHENIA [None]
  - GYNAECOMASTIA [None]
  - MENTAL IMPAIRMENT [None]
  - FATIGUE [None]
  - INFERTILITY [None]
